FAERS Safety Report 9553204 (Version 1)
Quarter: 2013Q3

REPORT INFORMATION
  Report Type: Spontaneous
  Country: US (occurrence: None)
  Receive Date: 20130724
  Receipt Date: 20130724
  Transmission Date: 20140515
  Serious: Yes (Other)
  Sender: FDA-Public Use
  Company Number: PHEH2012US018608

PATIENT
  Age: 46 Year
  Sex: Male

DRUGS (16)
  1. GLEEVEC [Suspect]
     Route: 048
     Dates: start: 20120630
  2. METOPROLOL SUCCINATE (METOPROLOL SUCCINATE) [Concomitant]
  3. PROMETHAZINE (PROMEHTAZINE) [Concomitant]
  4. HYDROCODONE (HYDROCODONE) [Concomitant]
  5. CIPROFLOXACIN (CIPROFLOXACIN) [Concomitant]
  6. LEVITRA (VARDENAFIL HYDROCHYLORIDE) [Concomitant]
  7. TOPIRAMATE (TOPIRAMATE) [Concomitant]
  8. LIPOFENE (FENOFIBRATE) [Concomitant]
  9. ALLOPURINOL (ALLOPURINOL) [Concomitant]
  10. MAG-OX (MAGNESIUM OXIDE) [Concomitant]
  11. METOPROLOL (METOPROLOL) [Concomitant]
  12. METHENAMINE (METHENAMIDE) [Concomitant]
  13. PHENYL SALICYLATE (PHENY SALICYLATE) [Concomitant]
  14. METHYLENE BLUE (METHYLTHIONINIUM CHLORIDE) [Concomitant]
  15. ATROPINE (ATROPINE) [Concomitant]
  16. HYOSCYAMINE (HYOSCYAMINE) [Concomitant]

REACTIONS (3)
  - Arrhythmia [None]
  - Fatigue [None]
  - Dyspnoea [None]
